FAERS Safety Report 19166556 (Version 1)
Quarter: 2021Q2

REPORT INFORMATION
  Report Type: Spontaneous
  Country: US (occurrence: US)
  Receive Date: 20210422
  Receipt Date: 20210422
  Transmission Date: 20210717
  Serious: No
  Sender: FDA-Public Use
  Company Number: US-GLAXOSMITHKLINE-US2021083431

PATIENT
  Age: 38 Year
  Sex: Female

DRUGS (1)
  1. FLOVENT DISKUS [Suspect]
     Active Substance: FLUTICASONE PROPIONATE
     Indication: PRODUCT USED FOR UNKNOWN INDICATION
     Dosage: 2 PUFF(S), BID
     Dates: start: 20210326, end: 20210329

REACTIONS (3)
  - Head discomfort [Recovered/Resolved]
  - Extra dose administered [Unknown]
  - Insomnia [Unknown]

NARRATIVE: CASE EVENT DATE: 20210413
